FAERS Safety Report 16982718 (Version 1)
Quarter: 2019Q4

REPORT INFORMATION
  Report Type: Other
  Country: RO (occurrence: RO)
  Receive Date: 20191101
  Receipt Date: 20191101
  Transmission Date: 20200122
  Serious: Yes (Hospitalization)
  Sender: FDA-Public Use
  Company Number: RO-APTAPHARMA INC.-2076321

PATIENT
  Age: 68 Year
  Sex: Male

DRUGS (2)
  1. IBUPROFEN ORAL [Suspect]
     Active Substance: IBUPROFEN
     Indication: MIGRAINE
     Route: 065
  2. CARBAMAZEPINE. [Concomitant]
     Active Substance: CARBAMAZEPINE
     Route: 065

REACTIONS (9)
  - Intentional product misuse [Unknown]
  - Dysphonia [Unknown]
  - Systemic inflammatory response syndrome [Unknown]
  - Tracheo-oesophageal fistula [Unknown]
  - Dysphagia [Recovering/Resolving]
  - Cholestasis [Unknown]
  - Anaemia [Unknown]
  - Cachexia [Unknown]
  - Hypokalaemia [Unknown]
